FAERS Safety Report 10031423 (Version 1)
Quarter: 2014Q1

REPORT INFORMATION
  Report Type: Spontaneous
  Country: US (occurrence: US)
  Receive Date: 20140324
  Receipt Date: 20140324
  Transmission Date: 20141002
  Serious: No
  Sender: FDA-Public Use
  Company Number: US-B.I. PHARMACEUTICALS,INC./RIDGEFIELD-2014-BI-10851BP

PATIENT
  Age: 60 Year
  Sex: Female
  Weight: 64 kg

DRUGS (8)
  1. COMBIVENT [Suspect]
     Indication: CHRONIC OBSTRUCTIVE PULMONARY DISEASE
     Dosage: DOSE PER APPLICATION: 20 MCG / 100 MCG; DAILY DOSE: 160 MCG/ 800 MCG
     Route: 055
  2. PLAVIX [Concomitant]
     Indication: ILL-DEFINED DISORDER
     Dosage: 75 MG
     Route: 048
  3. TRAMADOL HCL [Concomitant]
     Indication: MYALGIA
     Dosage: 100 MG
     Route: 048
  4. CITALOPRAM [Concomitant]
     Indication: NERVE INJURY
     Dosage: 40 MG
     Route: 048
  5. SLOW NIACIN [Concomitant]
     Indication: MULTIPLE SCLEROSIS
     Dosage: 250 MG
     Route: 048
  6. TRAZADONE [Concomitant]
     Indication: DEPRESSION
     Dosage: 100 MG
     Route: 048
  7. HYDROCODONE ACETAMINOPHENT [Concomitant]
     Indication: INTERVERTEBRAL DISC PROTRUSION
     Dosage: DOSE PER APPLICATION: 10-325MG
     Route: 048
  8. RANITIDINE [Concomitant]
     Indication: GASTROOESOPHAGEAL REFLUX DISEASE
     Dosage: 150 MG
     Route: 048

REACTIONS (4)
  - Fall [Recovered/Resolved]
  - Musculoskeletal pain [Recovered/Resolved]
  - Dizziness [Recovered/Resolved]
  - Prescribed overdose [Not Recovered/Not Resolved]
